FAERS Safety Report 13400725 (Version 1)
Quarter: 2017Q2

REPORT INFORMATION
  Report Type: Spontaneous
  Country: US (occurrence: US)
  Receive Date: 20170404
  Receipt Date: 20170404
  Transmission Date: 20170830
  Serious: No
  Sender: FDA-Public Use
  Company Number: US-ASTRAZENECA-2017SE12759

PATIENT
  Age: 60 Year
  Sex: Female

DRUGS (1)
  1. ZETONNA [Suspect]
     Active Substance: CICLESONIDE
     Indication: RHINITIS ALLERGIC
     Route: 045
     Dates: start: 201701, end: 201701

REACTIONS (4)
  - Sinus disorder [Unknown]
  - Headache [Unknown]
  - Drug ineffective [Unknown]
  - Rhinitis allergic [Unknown]

NARRATIVE: CASE EVENT DATE: 201701
